FAERS Safety Report 7354970-2 (Version None)
Quarter: 2011Q1

REPORT INFORMATION
  Report Type: 
  Country: None (occurrence: None)
  Receive Date: 20110316
  Receipt Date: 20110307
  Transmission Date: 20110831
  Serious: Yes (Hospitalization, Other)
  Sender: FDA-Public Use
  Company Number: GB-AMGEN-GBRSP2011013449

PATIENT
  Age: 28 Year
  Sex: Female
  Weight: 103 kg

DRUGS (2)
  1. ENBREL [Suspect]
     Indication: PSORIASIS
     Dosage: 50.0 MG, WEEKLY
     Route: 058
     Dates: start: 20090902, end: 20100513
  2. DIAMOX [Concomitant]
     Indication: BENIGN INTRACRANIAL HYPERTENSION
     Dosage: 0.25 MG, 1X/DAY
     Route: 048
     Dates: start: 20071001, end: 20090513

REACTIONS (3)
  - URINARY TRACT INFECTION [None]
  - HYPERTENSION [None]
  - DRUG EXPOSURE DURING PREGNANCY [None]
